FAERS Safety Report 5392449-8 (Version None)
Quarter: 2007Q3

REPORT INFORMATION
  Report Type: 
  Country: None (occurrence: None)
  Receive Date: 20070720
  Receipt Date: 20070712
  Transmission Date: 20080115
  Serious: Yes (Death, Hospitalization)
  Sender: FDA-Public Use
  Company Number: GB-ABBOTT-06P-167-0353379-00

PATIENT
  Sex: Female
  Weight: 51 kg

DRUGS (11)
  1. HUMIRA [Suspect]
     Indication: RHEUMATOID ARTHRITIS
     Route: 058
     Dates: start: 20060510, end: 20060818
  2. PREDNISONE [Concomitant]
     Indication: DRUG USE FOR UNKNOWN INDICATION
  3. BECLOMETHASONE DIPROPIONATE [Concomitant]
     Indication: DRUG USE FOR UNKNOWN INDICATION
  4. CALCIUM CARBONATE [Concomitant]
     Indication: DRUG USE FOR UNKNOWN INDICATION
  5. COD-LIVER OIL [Concomitant]
     Indication: DRUG USE FOR UNKNOWN INDICATION
  6. ACETAMINOPHEN AND CODEINE PHOSPHATE [Concomitant]
     Indication: DRUG USE FOR UNKNOWN INDICATION
  7. PETHIDINE [Concomitant]
     Indication: DRUG USE FOR UNKNOWN INDICATION
  8. SALBUTAMOL [Concomitant]
     Indication: DRUG USE FOR UNKNOWN INDICATION
  9. THRYOXINE [Concomitant]
     Indication: DRUG USE FOR UNKNOWN INDICATION
  10. ASCORBIC ACID [Concomitant]
     Indication: DRUG USE FOR UNKNOWN INDICATION
  11. VITAMIN CAP [Concomitant]
     Indication: DRUG USE FOR UNKNOWN INDICATION

REACTIONS (4)
  - LUMBAR VERTEBRAL FRACTURE [None]
  - PNEUMONIA [None]
  - PULMONARY FIBROSIS [None]
  - RHEUMATOID ARTHRITIS [None]
